FAERS Safety Report 4741399-6 (Version None)
Quarter: 2005Q3

REPORT INFORMATION
  Report Type: 
  Country: None (occurrence: None)
  Receive Date: 20050808
  Receipt Date: 20050726
  Transmission Date: 20060218
  Serious: Yes (Hospitalization, Other)
  Sender: FDA-Public Use
  Company Number: 233118K05USA

PATIENT
  Age: 46 Year
  Sex: Female

DRUGS (9)
  1. REBIF [Suspect]
     Indication: MULTIPLE SCLEROSIS
     Dosage: 44 MCG, 3  IN 1 WEEKS,SUBCUTANEOUS
     Route: 058
     Dates: start: 20041122
  2. BACLOFEN [Concomitant]
  3. EFFEXOR [Concomitant]
  4. AMBIEN [Concomitant]
  5. DIAZEPAM [Concomitant]
     Indication: MULTIPLE SCLEROSIS
     Dosage: 44 MCG, 3 IN 1 WEEKS, SUBCUTANEOUS
     Route: 058
     Dates: start: 20041122
  6. BACLOFEN 9BACLOFEN0 [Concomitant]
  7. EFFEXOR 9VENLAFAXINE0 [Concomitant]
  8. AMBIEN [Concomitant]
  9. DIAZEPAM [Concomitant]

REACTIONS (5)
  - ANAEMIA [None]
  - COORDINATION ABNORMAL [None]
  - DYSPNOEA [None]
  - FATIGUE [None]
  - INJECTION SITE IRRITATION [None]
